FAERS Safety Report 7912421-0 (Version None)
Quarter: 2011Q4

REPORT INFORMATION
  Report Type: 
  Country: None (occurrence: None)
  Receive Date: 20111114
  Receipt Date: 20111107
  Transmission Date: 20120403
  Serious: Yes (Hospitalization)
  Sender: FDA-Public Use
  Company Number: MX-PFIZER INC-2011274752

PATIENT
  Age: 40 Year
  Sex: Female

DRUGS (1)
  1. TYGACIL [Suspect]
     Indication: PROPHYLAXIS
     Dosage: UNK
     Route: 042
     Dates: start: 20111105, end: 20111105

REACTIONS (6)
  - HYPOTENSION [None]
  - PULMONARY OEDEMA [None]
  - TACHYCARDIA [None]
  - DYSPNOEA [None]
  - METABOLIC ACIDOSIS [None]
  - RESPIRATORY FAILURE [None]
